FAERS Safety Report 4434002-6 (Version None)
Quarter: 2004Q3

REPORT INFORMATION
  Report Type: 
  Country: None (occurrence: None)
  Receive Date: 20040825
  Receipt Date: 20040816
  Transmission Date: 20050211
  Serious: Yes (Hospitalization)
  Sender: FDA-Public Use
  Company Number: MK200408-0138-1

PATIENT
  Age: 11 Year
  Sex: Female

DRUGS (1)
  1. PAMELOR [Suspect]
     Dosage: 25MG, DAILY
     Dates: start: 20040802, end: 20040803

REACTIONS (6)
  - CONTRAINDICATION TO MEDICAL TREATMENT [None]
  - CONVULSION [None]
  - DEPRESSED LEVEL OF CONSCIOUSNESS [None]
  - PYREXIA [None]
  - SPEECH DISORDER [None]
  - VOMITING [None]
